FAERS Safety Report 7673155-3 (Version None)
Quarter: 2011Q3

REPORT INFORMATION
  Report Type: 
  Country: None (occurrence: None)
  Receive Date: 20110810
  Receipt Date: 20110802
  Transmission Date: 20111222
  Serious: No
  Sender: FDA-Public Use
  Company Number: US-BIOGENIDEC-2011BI026444

PATIENT
  Age: 40 Year
  Sex: Female

DRUGS (3)
  1. TYSABRI [Suspect]
     Route: 042
     Dates: start: 20040101, end: 20050101
  2. TYSABRI [Suspect]
     Route: 042
     Dates: start: 20110715
  3. TYSABRI [Suspect]
     Indication: MULTIPLE SCLEROSIS
     Route: 042
     Dates: start: 20070803, end: 20070914

REACTIONS (5)
  - NUCLEAR MAGNETIC RESONANCE IMAGING ABNORMAL [None]
  - HEADACHE [None]
  - MOBILITY DECREASED [None]
  - APHASIA [None]
  - PNEUMONIA [None]
